FAERS Safety Report 25134871 (Version 1)
Quarter: 2025Q1

REPORT INFORMATION
  Report Type: Spontaneous
  Country: US (occurrence: US)
  Receive Date: 20250328
  Receipt Date: 20250328
  Transmission Date: 20250409
  Serious: Yes (Death, Life-Threatening, Hospitalization)
  Sender: AMGEN
  Company Number: US-AMGEN-USASP2025059122

PATIENT
  Age: 48 Year
  Sex: Male

DRUGS (5)
  1. PREDNISONE [Suspect]
     Active Substance: PREDNISONE
     Indication: Immunosuppression
     Route: 065
  2. TACROLIMUS [Concomitant]
     Active Substance: TACROLIMUS
     Indication: Immunosuppression
  3. MYCOPHENOLATE MOFETIL [Concomitant]
     Active Substance: MYCOPHENOLATE MOFETIL
     Indication: Immunosuppression
  4. ATOVAQUONE [Concomitant]
     Active Substance: ATOVAQUONE
     Indication: Infection prophylaxis
     Route: 065
  5. VALGANCICLOVIR [Concomitant]
     Active Substance: VALGANCICLOVIR
     Indication: Infection prophylaxis

REACTIONS (13)
  - Death [Fatal]
  - Acute respiratory distress syndrome [Unknown]
  - Candida infection [Unknown]
  - Haemophagocytic lymphohistiocytosis [Unknown]
  - Respiratory failure [Unknown]
  - Acute kidney injury [Unknown]
  - Toxoplasmosis [Unknown]
  - Enterococcal bacteraemia [Unknown]
  - Pneumonia [Unknown]
  - Cerebrovascular accident [Unknown]
  - Brain death [Unknown]
  - Haemorrhagic transformation stroke [Unknown]
  - Fall [Unknown]
